FAERS Safety Report 14480865 (Version 4)
Quarter: 2018Q3

REPORT INFORMATION
  Report Type: Report from Study
  Country: GB (occurrence: GB)
  Receive Date: 20180202
  Receipt Date: 20180827
  Transmission Date: 20181010
  Serious: Yes (Hospitalization)
  Sender: FDA-Public Use
  Company Number: GB-TEVA-2018-GB-853342

PATIENT
  Age: 66 Year
  Sex: Male

DRUGS (4)
  1. AFINITOR [Suspect]
     Active Substance: EVEROLIMUS
     Indication: PANCREATIC NEUROENDOCRINE TUMOUR
     Route: 048
     Dates: start: 20140502, end: 20140724
  2. DEXAMETHASONE. [Suspect]
     Active Substance: DEXAMETHASONE
     Indication: PLASMA CELL MYELOMA
     Route: 065
     Dates: start: 20170703, end: 20170710
  3. DEXAMETHASONE. [Suspect]
     Active Substance: DEXAMETHASONE
     Indication: PNEUMONITIS
     Dosage: 8 MILLIGRAM DAILY;
     Route: 065
     Dates: start: 20170723, end: 20170725
  4. POMALIDOMIDE [Suspect]
     Active Substance: POMALIDOMIDE
     Indication: PLASMA CELL MYELOMA
     Route: 048
     Dates: start: 20170703, end: 20170717

REACTIONS (15)
  - Crepitations [Unknown]
  - Pneumonitis [Recovering/Resolving]
  - Dyspnoea [Recovered/Resolved]
  - Myopathy [Not Recovered/Not Resolved]
  - Malaise [Unknown]
  - Dyspnoea [Recovered/Resolved]
  - Neutrophilia [Recovered/Resolved]
  - Cough [Unknown]
  - Lower respiratory tract infection [Not Recovered/Not Resolved]
  - Wheezing [Unknown]
  - Procedural haemorrhage [Recovered/Resolved]
  - Blood glucose increased [Not Recovered/Not Resolved]
  - Fatigue [Not Recovered/Not Resolved]
  - Dysgeusia [Unknown]
  - Fatigue [Recovered/Resolved]

NARRATIVE: CASE EVENT DATE: 201405
